FAERS Safety Report 6631174-X (Version None)
Quarter: 2010Q1

REPORT INFORMATION
  Report Type: 
  Country: None (occurrence: None)
  Receive Date: 20100309
  Receipt Date: 20100301
  Transmission Date: 20100710
  Serious: Yes (Disabling, Other)
  Sender: FDA-Public Use
  Company Number: 008014

PATIENT
  Age: 27 Year
  Sex: Female
  Weight: 54 kg

DRUGS (6)
  1. KEPPRA [Suspect]
     Indication: EPILEPSY
     Dosage: (3 G QD ORAL)
     Route: 048
     Dates: start: 20060101
  2. CARBAMAZEPINE [Suspect]
     Indication: EPILEPSY
     Dosage: (1.2 G QD ORAL)
     Route: 048
     Dates: start: 20050101
  3. CLOBAZAM (CLOBAZAM) [Concomitant]
     Indication: EPILEPSY
     Dosage: (10 MG QD ORAL)
     Route: 048
     Dates: start: 20080101
  4. ZONEGRAN [Suspect]
     Indication: EPILEPSY
     Dosage: (75 MG  ORAL), (100 MG QOD ORAL), (25 MG QOD ORAL)
     Route: 048
     Dates: start: 20091101, end: 20091101
  5. ZONEGRAN [Suspect]
     Indication: EPILEPSY
     Dosage: (75 MG  ORAL), (100 MG QOD ORAL), (25 MG QOD ORAL)
     Route: 048
     Dates: start: 20091101, end: 20100205
  6. ZONEGRAN [Suspect]
     Indication: EPILEPSY
     Dosage: (75 MG  ORAL), (100 MG QOD ORAL), (25 MG QOD ORAL)
     Route: 048
     Dates: start: 20100206

REACTIONS (5)
  - APHASIA [None]
  - COGNITIVE DISORDER [None]
  - DEPRESSED MOOD [None]
  - FATIGUE [None]
  - LETHARGY [None]
